FAERS Safety Report 11080637 (Version 1)
Quarter: 2015Q2

REPORT INFORMATION
  Report Type: Spontaneous
  Country: US (occurrence: US)
  Receive Date: 20150501
  Receipt Date: 20150501
  Transmission Date: 20150821
  Serious: Yes (Other)
  Sender: FDA-Public Use
  Company Number: US-RB-076653-15

PATIENT
  Age: 24 Year
  Sex: Female

DRUGS (1)
  1. MUCINEX DM MAXIMUM STRENGTH [Suspect]
     Active Substance: DEXTROMETHORPHAN HYDROBROMIDE\GUAIFENESIN
     Indication: COUGH
     Dosage: DRUG WAS LAST USED ON 18-APR-2015 AT 07:00PM
     Route: 065
     Dates: start: 20150417

REACTIONS (4)
  - Diarrhoea [Recovered/Resolved]
  - Cough [Recovered/Resolved]
  - Hallucination, visual [Recovered/Resolved]
  - Drug ineffective [Not Recovered/Not Resolved]

NARRATIVE: CASE EVENT DATE: 20150417
